FAERS Safety Report 19086325 (Version 1)
Quarter: 2021Q2

REPORT INFORMATION
  Report Type: Spontaneous
  Country: TW (occurrence: TW)
  Receive Date: 20210402
  Receipt Date: 20210402
  Transmission Date: 20210717
  Serious: Yes (Hospitalization)
  Sender: FDA-Public Use
  Company Number: TW-ABBVIE-21K-153-3838404-00

PATIENT
  Age: 65 Year
  Sex: Female

DRUGS (3)
  1. CYTARABINE. [Concomitant]
     Active Substance: CYTARABINE
     Indication: PRODUCT USED FOR UNKNOWN INDICATION
     Dosage: 100 MG/M2
     Dates: start: 201903, end: 201906
  2. VENETOCLAX. [Suspect]
     Active Substance: VENETOCLAX
     Indication: CHEMOTHERAPY
     Route: 048
     Dates: start: 201903, end: 201906
  3. POSACONAZOLE [Concomitant]
     Active Substance: POSACONAZOLE
     Indication: FUNGAL INFECTION
     Route: 048
     Dates: start: 201903, end: 201905

REACTIONS (5)
  - Neutropenia [Recovered/Resolved]
  - Gingivitis [Unknown]
  - Febrile neutropenia [Recovered/Resolved]
  - Pancytopenia [Recovered/Resolved]
  - Pyrexia [Unknown]

NARRATIVE: CASE EVENT DATE: 201905
